FAERS Safety Report 23526520 (Version 1)
Quarter: 2024Q1

REPORT INFORMATION
  Report Type: Spontaneous
  Country: US (occurrence: None)
  Receive Date: 20240214
  Receipt Date: 20240214
  Transmission Date: 20240410
  Serious: Yes (Disabling)
  Sender: FDA-Public Use
  Company Number: None

PATIENT
  Age: 48 Year
  Sex: Female
  Weight: 103.5 kg

DRUGS (14)
  1. PAXLOVID [Suspect]
     Active Substance: NIRMATRELVIR\RITONAVIR
     Indication: COVID-19
     Dosage: OTHER QUANTITY : 20 TABLET(S);?FREQUENCY : TWICE A DAY;?
     Route: 048
     Dates: start: 20240123, end: 20240127
  2. VENLAFAXINE HYDROCHLORIDE [Concomitant]
     Active Substance: VENLAFAXINE HYDROCHLORIDE
  3. Metronidazole Topical Cream 0.75% [Concomitant]
  4. SODIUM SULFACETAMIDE 10 SULFUR 5 [Concomitant]
  5. suffer 5% [Concomitant]
  6. VITAMINS [Concomitant]
     Active Substance: VITAMINS
  7. FISH OIL [Concomitant]
     Active Substance: FISH OIL
  8. VITAMIN D [Concomitant]
     Active Substance: VITAMIN D NOS
  9. VITAMIN C [Concomitant]
     Active Substance: ASCORBIC ACID
  10. MAGNESIUM [Concomitant]
     Active Substance: MAGNESIUM
  11. ZYRTEC [Concomitant]
     Active Substance: CETIRIZINE HYDROCHLORIDE
  12. VITAMIN D [Concomitant]
     Active Substance: VITAMIN D NOS
  13. Strain Probiotic [Concomitant]
  14. BIOTIN [Concomitant]
     Active Substance: BIOTIN

REACTIONS (5)
  - Axillary mass [None]
  - Cyst [None]
  - Pain [None]
  - Erythema [None]
  - Skin discharge [None]

NARRATIVE: CASE EVENT DATE: 20240127
